FAERS Safety Report 5158377-8 (Version None)
Quarter: 2006Q4

REPORT INFORMATION
  Report Type: 
  Country: None (occurrence: None)
  Receive Date: 20061121
  Receipt Date: 20061121
  Transmission Date: 20070319
  Serious: Yes (Life-Threatening, Hospitalization, Disabling, Other)
  Sender: FDA-Public Use
  Company Number: None

PATIENT
  Age: 44 Year
  Sex: Male
  Weight: 90.7194 kg

DRUGS (1)
  1. PROGRAF [Suspect]
     Indication: HEART TRANSPLANT
     Dosage: 3MG TWICE DAILY PO
     Route: 048
     Dates: start: 20030803, end: 20061120

REACTIONS (12)
  - ARTERIAL DISORDER [None]
  - ASTHENIA [None]
  - DYSPHAGIA [None]
  - GAIT DISTURBANCE [None]
  - HEART TRANSPLANT REJECTION [None]
  - LIFE SUPPORT [None]
  - LIVER DISORDER [None]
  - MEDICATION TAMPERING [None]
  - PHARMACEUTICAL PRODUCT COMPLAINT [None]
  - PNEUMONIA [None]
  - RENAL DISORDER [None]
  - SPEECH DISORDER [None]
